FAERS Safety Report 6619705-7 (Version None)
Quarter: 2010Q1

REPORT INFORMATION
  Report Type: 
  Country: None (occurrence: None)
  Receive Date: 20100309
  Receipt Date: 20100224
  Transmission Date: 20100710
  Serious: Yes (Other)
  Sender: FDA-Public Use
  Company Number: PHHY2010JP06456

PATIENT
  Sex: Female
  Weight: 55 kg

DRUGS (1)
  1. CO-DIOVAN [Suspect]
     Indication: HYPERTENSION
     Dosage: 80/12.5 MG
     Route: 048
     Dates: start: 20091210, end: 20100129

REACTIONS (7)
  - ERYTHEMA [None]
  - PHOTOSENSITIVITY REACTION [None]
  - PIGMENTATION DISORDER [None]
  - PRURITUS GENERALISED [None]
  - RASH PAPULAR [None]
  - SKIN EXFOLIATION [None]
  - SWELLING [None]
